FAERS Safety Report 14108103 (Version 3)
Quarter: 2017Q4

REPORT INFORMATION
  Report Type: Spontaneous
  Country: JP (occurrence: JP)
  Receive Date: 20171019
  Receipt Date: 20171114
  Transmission Date: 20180321
  Serious: Yes (Hospitalization, Other)
  Sender: FDA-Public Use
  Company Number: JP-PFIZER INC-2017443120

PATIENT
  Age: 40 Year
  Sex: Female

DRUGS (12)
  1. EFFEXOR [Suspect]
     Active Substance: VENLAFAXINE HYDROCHLORIDE
     Indication: DEPRESSION
     Dosage: 37.5 MG, DAILY
     Route: 048
     Dates: start: 20170724, end: 20170823
  2. LORAZEPAM. [Suspect]
     Active Substance: LORAZEPAM
     Dosage: 1 MG, AS NEEDED (1 OR 2 TIMES PER DAY)
     Route: 048
     Dates: start: 20170731
  3. EFFEXOR [Suspect]
     Active Substance: VENLAFAXINE HYDROCHLORIDE
     Dosage: 37.5 MG, DAILY
     Route: 048
     Dates: start: 20170921
  4. MYSLEE [Suspect]
     Active Substance: ZOLPIDEM TARTRATE
     Dosage: 10 MG, 1X/DAY
     Route: 048
     Dates: end: 20170813
  5. CONSTAN [Suspect]
     Active Substance: ALPRAZOLAM
     Indication: ILLNESS ANXIETY DISORDER
  6. MAGMITT [Concomitant]
     Active Substance: MAGNESIUM OXIDE
     Indication: CONSTIPATION
     Dosage: 330 MG, 1X/DAY
     Route: 048
     Dates: start: 20170726
  7. SUMATRIPTAN. [Concomitant]
     Active Substance: SUMATRIPTAN
     Indication: MIGRAINE
     Dosage: 50 MG, AS NEEDED, ONCE EVERY 2 TO 3 DAYS
     Route: 048
     Dates: start: 201703
  8. EFFEXOR [Suspect]
     Active Substance: VENLAFAXINE HYDROCHLORIDE
     Dosage: 75 MG, DAILY
     Route: 048
     Dates: start: 20170824, end: 20170920
  9. LORAZEPAM. [Suspect]
     Active Substance: LORAZEPAM
     Dosage: 1 MG, 3X/DAY
     Route: 048
     Dates: start: 20170731
  10. CONSTAN [Suspect]
     Active Substance: ALPRAZOLAM
     Indication: ANXIETY
     Dosage: 0.4 MG, 3X/DAY
     Route: 048
     Dates: start: 20170509, end: 20170823
  11. LEXAPRO [Concomitant]
     Active Substance: ESCITALOPRAM OXALATE
     Indication: DEPRESSION
     Dosage: 10 MG, UNK
     Dates: start: 20170724, end: 20170814
  12. FLUNITRAZEPAM [Suspect]
     Active Substance: FLUNITRAZEPAM
     Indication: INSOMNIA
     Dosage: 2 MG, 1X/DAY
     Route: 048
     Dates: start: 20170814

REACTIONS (11)
  - Somnolence [Recovered/Resolved]
  - Fatigue [Unknown]
  - Depression [Recovering/Resolving]
  - Suicidal ideation [Unknown]
  - Intentional overdose [Recovered/Resolved]
  - Sedation complication [Recovered/Resolved]
  - Dysarthria [Recovered/Resolved]
  - Suicide attempt [Recovered/Resolved]
  - Condition aggravated [Recovering/Resolving]
  - Restlessness [Unknown]
  - Mental impairment [Recovered/Resolved]

NARRATIVE: CASE EVENT DATE: 20170726
